FAERS Safety Report 4405659-0 (Version None)
Quarter: 2004Q3

REPORT INFORMATION
  Report Type: 
  Country: None (occurrence: None)
  Receive Date: 20040723
  Receipt Date: 20031105
  Transmission Date: 20050211
  Serious: No
  Sender: FDA-Public Use
  Company Number: US-GLAXOSMITHKLINE-A0433144A

PATIENT
  Age: 70 Year
  Sex: Male

DRUGS (6)
  1. AVANDIA [Suspect]
     Dosage: 4MG PER DAY
     Route: 048
     Dates: start: 20030901
  2. PLAVIX [Concomitant]
  3. SYNTHROID [Concomitant]
  4. ZOCOR [Concomitant]
  5. BLOOD PRESSURE MEDICATION [Concomitant]
  6. FUROSEMIDE [Concomitant]

REACTIONS (1)
  - POST PROCEDURAL PAIN [None]
